FAERS Safety Report 16789422 (Version 1)
Quarter: 2019Q3

REPORT INFORMATION
  Report Type: Spontaneous
  Country: US (occurrence: US)
  Receive Date: 20190910
  Receipt Date: 20190910
  Transmission Date: 20191005
  Serious: No
  Sender: FDA-Public Use
  Company Number: US-TEVA-2019-US-1106752

PATIENT
  Age: 62 Year
  Sex: Female
  Weight: 88.43 kg

DRUGS (2)
  1. FEXOFENADINE [Suspect]
     Active Substance: FEXOFENADINE HYDROCHLORIDE
     Indication: HYPERSENSITIVITY
     Dosage: 180 MILLIGRAM DAILY; FEXOFENIDINE 180 MG QD
     Route: 048
     Dates: start: 201906
  2. FEXOFENADINE [Suspect]
     Active Substance: FEXOFENADINE HYDROCHLORIDE
     Dosage: 360 MILLIGRAM DAILY; FEXOFENIDINE 180 MG, TWICE WITHIN 2 HOURS
     Route: 048
     Dates: start: 20190901, end: 20190901

REACTIONS (2)
  - Somnolence [Recovered/Resolved]
  - Incorrect dose administered [Unknown]

NARRATIVE: CASE EVENT DATE: 20190901
